FAERS Safety Report 18910491 (Version 1)
Quarter: 2021Q1

REPORT INFORMATION
  Report Type: Report from Study
  Country: CA (occurrence: CA)
  Receive Date: 20210218
  Receipt Date: 20210218
  Transmission Date: 20210420
  Serious: Yes (Other)
  Sender: FDA-Public Use
  Company Number: CA-REGENERON PHARMACEUTICALS, INC.-2021-25388

PATIENT

DRUGS (1)
  1. EYLEA [Suspect]
     Active Substance: AFLIBERCEPT
     Indication: NEOVASCULAR AGE-RELATED MACULAR DEGENERATION
     Dosage: UNK

REACTIONS (7)
  - Cataract operation [Unknown]
  - Visual impairment [Unknown]
  - Retinal injury [Unknown]
  - Extraocular muscle paresis [Unknown]
  - Macular oedema [Unknown]
  - Eye injury [Unknown]
  - Vision blurred [Unknown]

NARRATIVE: CASE EVENT DATE: 20200901
